FAERS Safety Report 25137166 (Version 3)
Quarter: 2025Q3

REPORT INFORMATION
  Report Type: Report from Study
  Country: US (occurrence: US)
  Receive Date: 20250329
  Receipt Date: 20250721
  Transmission Date: 20251021
  Serious: Yes (Hospitalization)
  Sender: ABBVIE
  Company Number: US-ABBVIE-6199310

PATIENT
  Age: 56 Year
  Sex: Female

DRUGS (6)
  1. SKYRIZI [Suspect]
     Active Substance: RISANKIZUMAB-RZAA
     Indication: Crohn^s disease
     Route: 058
     Dates: start: 20241223, end: 20241223
  2. SKYRIZI [Suspect]
     Active Substance: RISANKIZUMAB-RZAA
     Dosage: STRENGTH: 360MG/2.4ML
     Route: 058
     Dates: start: 20250501
  3. SKYRIZI [Suspect]
     Active Substance: RISANKIZUMAB-RZAA
     Dosage: STRENGTH: 360MG/2.4ML
     Route: 058
     Dates: start: 20250709
  4. SKYRIZI [Suspect]
     Active Substance: RISANKIZUMAB-RZAA
     Indication: Crohn^s disease
     Route: 042
     Dates: start: 202410, end: 202410
  5. SKYRIZI [Suspect]
     Active Substance: RISANKIZUMAB-RZAA
     Indication: Crohn^s disease
     Route: 042
     Dates: start: 202409, end: 202409
  6. SKYRIZI [Suspect]
     Active Substance: RISANKIZUMAB-RZAA
     Indication: Crohn^s disease
     Route: 042
     Dates: start: 20241125, end: 20241125

REACTIONS (11)
  - Impaired gastric emptying [Unknown]
  - Fatigue [Unknown]
  - Flatulence [Unknown]
  - Abdominal pain [Unknown]
  - Insomnia [Unknown]
  - Gastrointestinal sounds abnormal [Unknown]
  - Drug ineffective [Unknown]
  - Asthenia [Unknown]
  - Decreased appetite [Unknown]
  - Constipation [Not Recovered/Not Resolved]
  - Device dislocation [Unknown]

NARRATIVE: CASE EVENT DATE: 20250101
